FAERS Safety Report 19747210 (Version 1)
Quarter: 2021Q3

REPORT INFORMATION
  Report Type: Spontaneous
  Country: NL (occurrence: NL)
  Receive Date: 20210826
  Receipt Date: 20210826
  Transmission Date: 20211014
  Serious: Yes (Other)
  Sender: FDA-Public Use
  Company Number: NL-AUROBINDO-AUR-APL-2021-035554

PATIENT
  Sex: Female
  Weight: 66 kg

DRUGS (3)
  1. ETHINYLESTRADIOL/LEVONORGESTREL [Concomitant]
     Active Substance: ETHINYL ESTRADIOL\LEVONORGESTREL
     Indication: PRODUCT USED FOR UNKNOWN INDICATION
     Dosage: TABLET, 20/100 ?G (MICROGRAM)
     Route: 065
  2. VENLAFAXINE PROLONGED RELEASED CAPSULES, HARD 150MG [Suspect]
     Active Substance: VENLAFAXINE HYDROCHLORIDE
     Indication: ANXIETY
     Dosage: 1X PER DAG 1 STUK
     Route: 065
     Dates: start: 201803
  3. VENLAFAXINE PROLONGED RELEASED CAPSULES, HARD 150MG [Suspect]
     Active Substance: VENLAFAXINE HYDROCHLORIDE
     Indication: DEPRESSION

REACTIONS (2)
  - Apnoea [Recovered/Resolved]
  - Snoring [Recovered/Resolved]
